FAERS Safety Report 7596769-8 (Version None)
Quarter: 2011Q3

REPORT INFORMATION
  Report Type: 
  Country: None (occurrence: None)
  Receive Date: 20110708
  Receipt Date: 20110706
  Transmission Date: 20111222
  Serious: No
  Sender: FDA-Public Use
  Company Number: US-PFIZER INC-2011152051

PATIENT
  Sex: Female
  Weight: 107 kg

DRUGS (8)
  1. LYRICA [Suspect]
     Dosage: 75 MG, 3X/DAY
     Dates: start: 20110618, end: 20110622
  2. MELOXICAM [Concomitant]
     Indication: ARTHRITIS
     Dosage: UNK
  3. INSULIN [Concomitant]
     Indication: DIABETES MELLITUS
     Dosage: 30 UNITS AT NIGHT
  4. SIMVASTATIN [Concomitant]
     Indication: BLOOD CHOLESTEROL INCREASED
     Dosage: 80MG
  5. METFORMIN [Concomitant]
     Indication: DIABETES MELLITUS
     Dosage: 1000 MG, 2X/DAY
  6. LYRICA [Suspect]
     Indication: FIBROMYALGIA
     Dosage: 75 MG, 2X/DAY
  7. WARFARIN [Concomitant]
     Dosage: UNK
  8. LYRICA [Suspect]
     Indication: DIABETIC NEUROPATHY
     Dosage: 75 MG, 1X/DAY
     Route: 048
     Dates: start: 20110601

REACTIONS (1)
  - OEDEMA PERIPHERAL [None]
